FAERS Safety Report 13093299 (Version 1)
Quarter: 2017Q1

REPORT INFORMATION
  Report Type: Spontaneous
  Country: US (occurrence: US)
  Receive Date: 20170106
  Receipt Date: 20170106
  Transmission Date: 20170428
  Serious: Yes (Hospitalization)
  Sender: FDA-Public Use
  Company Number: US-BAYER-2016-223528

PATIENT
  Age: 59 Year
  Sex: Male
  Weight: 99.79 kg

DRUGS (7)
  1. PAZOPANIB [Suspect]
     Active Substance: PAZOPANIB
     Indication: RENAL CELL CARCINOMA
     Dosage: 800 MG, QD
     Route: 048
     Dates: start: 20141201, end: 20150211
  2. ALEVE [Suspect]
     Active Substance: NAPROXEN SODIUM
     Indication: RENAL CELL CARCINOMA
     Dosage: UNK
     Route: 048
     Dates: end: 20151109
  3. LOSARTAN POTASSIUM. [Suspect]
     Active Substance: LOSARTAN POTASSIUM
     Indication: RENAL CELL CARCINOMA
     Dosage: UNK
  4. BACTRIM [Suspect]
     Active Substance: SULFAMETHOXAZOLE\TRIMETHOPRIM
     Indication: CELLULITIS
     Dosage: UNK
     Route: 048
     Dates: end: 20151109
  5. BACTRIM [Suspect]
     Active Substance: SULFAMETHOXAZOLE\TRIMETHOPRIM
     Indication: RENAL CELL CARCINOMA
  6. SENSIPAR [Suspect]
     Active Substance: CINACALCET HYDROCHLORIDE
     Indication: RENAL CELL CARCINOMA
     Dosage: 15 MG/KG, CYCLIC
     Route: 042
     Dates: start: 20150921, end: 20151026
  7. HYDROCHLOROTHIAZIDE. [Suspect]
     Active Substance: HYDROCHLOROTHIAZIDE
     Dosage: UNK

REACTIONS (3)
  - Hypotension [Recovered/Resolved]
  - Skin infection [Recovered/Resolved]
  - Acute kidney injury [Recovered/Resolved]

NARRATIVE: CASE EVENT DATE: 20151109
